FAERS Safety Report 23975805 (Version 1)
Quarter: 2024Q2

REPORT INFORMATION
  Report Type: Spontaneous
  Country: AU (occurrence: AU)
  Receive Date: 20240614
  Receipt Date: 20240614
  Transmission Date: 20240715
  Serious: Yes (Other)
  Sender: FDA-Public Use
  Company Number: AU-STRIDES ARCOLAB LIMITED-2024SP006794

PATIENT
  Age: 17 Year
  Sex: Female

DRUGS (9)
  1. CALCITRIOL [Suspect]
     Active Substance: CALCITRIOL
     Indication: Hypocalcaemia
     Dosage: UNK
     Route: 048
  2. CALCITRIOL [Suspect]
     Active Substance: CALCITRIOL
     Dosage: UNK
     Route: 042
  3. TERIPARATIDE [Suspect]
     Active Substance: TERIPARATIDE
     Indication: Hypocalcaemia
     Dosage: 20 MICROGRAM, BID
     Route: 065
  4. CALCIUM GLUCONATE [Suspect]
     Active Substance: CALCIUM GLUCONATE
     Indication: Hypocalcaemia
     Dosage: UNK
     Route: 042
  5. CALCIUM CARBONATE [Suspect]
     Active Substance: CALCIUM CARBONATE
     Indication: Hypocalcaemia
     Dosage: UNK
     Route: 048
  6. MAGNESIUM [Concomitant]
     Active Substance: MAGNESIUM
     Indication: Product used for unknown indication
     Dosage: UNK
     Route: 065
  7. CHOLECALCIFEROL [Concomitant]
     Active Substance: CHOLECALCIFEROL
     Indication: Product used for unknown indication
     Dosage: UNK (HIGH DOSE)
     Route: 065
  8. IODINE\POTASSIUM IODIDE [Concomitant]
     Active Substance: IODINE\POTASSIUM IODIDE
     Indication: Product used for unknown indication
     Dosage: UNK
     Route: 065
  9. CARBIMAZOLE [Concomitant]
     Active Substance: CARBIMAZOLE
     Indication: Product used for unknown indication
     Dosage: UNK
     Route: 065

REACTIONS (2)
  - Therapy non-responder [Unknown]
  - Off label use [Unknown]
